FAERS Safety Report 16261502 (Version 1)
Quarter: 2019Q2

REPORT INFORMATION
  Report Type: Spontaneous
  Country: US (occurrence: US)
  Receive Date: 20190501
  Receipt Date: 20190501
  Transmission Date: 20190711
  Serious: No
  Sender: FDA-Public Use
  Company Number: US-SA-2019SA113441

PATIENT
  Sex: Male

DRUGS (20)
  1. DECOMB [Concomitant]
  2. METFORMIN HYDROCHLORIDE. [Concomitant]
     Active Substance: METFORMIN HYDROCHLORIDE
  3. FLUTICASONE. [Concomitant]
     Active Substance: FLUTICASONE
  4. LEVOFLOXACIN. [Concomitant]
     Active Substance: LEVOFLOXACIN
  5. GLIMEPIRIDE. [Concomitant]
     Active Substance: GLIMEPIRIDE
  6. TELMISARTAN/HYDROCHLOROTHIAZIDE [Concomitant]
     Active Substance: HYDROCHLOROTHIAZIDE\TELMISARTAN
  7. CARVEDILOL. [Concomitant]
     Active Substance: CARVEDILOL
  8. ATORVASTATIN CALCIUM. [Concomitant]
     Active Substance: ATORVASTATIN CALCIUM
  9. PRALUENT [Suspect]
     Active Substance: ALIROCUMAB
     Dosage: 75 MG, QOW
     Route: 058
  10. ECONAZOLE NITRATE. [Concomitant]
     Active Substance: ECONAZOLE NITRATE
  11. DICLOFENAC SODIUM. [Concomitant]
     Active Substance: DICLOFENAC SODIUM
  12. HYDROCORTISONE. [Concomitant]
     Active Substance: HYDROCORTISONE
  13. MUPIROCIN. [Concomitant]
     Active Substance: MUPIROCIN
  14. ASPIRIN (E.C.) [Concomitant]
     Active Substance: ASPIRIN
  15. AZITHROMYCIN ANHYDROUS. [Concomitant]
     Active Substance: AZITHROMYCIN ANHYDROUS
  16. NITROGLYCERIN. [Suspect]
     Active Substance: NITROGLYCERIN
  17. MYRBETRIQ [Concomitant]
     Active Substance: MIRABEGRON
  18. LIDOCAINE. [Concomitant]
     Active Substance: LIDOCAINE
  19. TRIAMCINOLONE ACETONIDE. [Concomitant]
     Active Substance: TRIAMCINOLONE ACETONIDE
  20. DUTASTERIDE. [Concomitant]
     Active Substance: DUTASTERIDE

REACTIONS (1)
  - Injection site pain [Unknown]
